FAERS Safety Report 7254083-4 (Version None)
Quarter: 2011Q1

REPORT INFORMATION
  Report Type: 
  Country: None (occurrence: None)
  Receive Date: 20110129
  Receipt Date: 20100318
  Transmission Date: 20110831
  Serious: Yes (Disabling)
  Sender: FDA-Public Use
  Company Number: US-ABBOTT-10P-163-0631717-00

PATIENT
  Sex: Male
  Weight: 83.99 kg

DRUGS (4)
  1. HUMIRA [Suspect]
     Indication: ANKYLOSING SPONDYLITIS
  2. HUMIRA [Suspect]
     Indication: REYE'S SYNDROME
     Dates: start: 20070305
  3. METHOTREXATE [Concomitant]
     Indication: REYE'S SYNDROME
     Dosage: INJECTABLE
  4. METHOTREXATE [Concomitant]
     Indication: ANKYLOSING SPONDYLITIS

REACTIONS (2)
  - PAIN IN EXTREMITY [None]
  - IMPAIRED HEALING [None]
